FAERS Safety Report 6506029-1 (Version None)
Quarter: 2009Q4

REPORT INFORMATION
  Report Type: 
  Country: None (occurrence: None)
  Receive Date: 20091217
  Receipt Date: 20091217
  Transmission Date: 20100525
  Serious: Yes (Other)
  Sender: FDA-Public Use
  Company Number: None

PATIENT
  Age: 41 Year
  Sex: Female
  Weight: 77.1115 kg

DRUGS (1)
  1. LEVAQUIN [Suspect]
     Indication: SINUSITIS
     Dosage: 1 DOSE
     Dates: start: 20091215, end: 20091215

REACTIONS (4)
  - BURNING SENSATION [None]
  - PRURITUS [None]
  - RASH [None]
  - URTICARIA [None]
